FAERS Safety Report 4690139-8 (Version None)
Quarter: 2005Q2

REPORT INFORMATION
  Report Type: 
  Country: None (occurrence: None)
  Receive Date: 20050613
  Receipt Date: 20050526
  Transmission Date: 20051028
  Serious: Yes (Hospitalization)
  Sender: FDA-Public Use
  Company Number: DSA_26403_2005

PATIENT
  Age: 27 Year
  Sex: Female

DRUGS (4)
  1. TAVOR [Suspect]
     Dosage: 6 MG ONCE PO
     Route: 048
     Dates: start: 20050502, end: 20050502
  2. BEER [Suspect]
     Dosage: 3.5 BOTTLE ONCE PO
     Route: 048
     Dates: start: 20050502, end: 20050502
  3. AMITRIPTYLINE HCL [Suspect]
     Dosage: 2250 MG ONCE PO
     Route: 048
     Dates: start: 20050502, end: 20050502
  4. DOXYLAMINE [Suspect]
     Dosage: 30 TAB ONCE PO
     Route: 048
     Dates: start: 20050205, end: 20050502

REACTIONS (4)
  - BLOOD CREATINE PHOSPHOKINASE INCREASED [None]
  - BLOOD CREATINE PHOSPHOKINASE MB INCREASED [None]
  - INTENTIONAL MISUSE [None]
  - TRANSAMINASES INCREASED [None]
